FAERS Safety Report 9791897 (Version 2)
Quarter: 2014Q2

REPORT INFORMATION
  Report Type: Spontaneous
  Country: US (occurrence: US)
  Receive Date: 20140102
  Receipt Date: 20140416
  Transmission Date: 20141212
  Serious: No
  Sender: FDA-Public Use
  Company Number: US-PFIZER INC-2013374408

PATIENT
  Age: 65 Year
  Sex: Female
  Weight: 52.15 kg

DRUGS (1)
  1. RELPAX [Suspect]
     Indication: MIGRAINE
     Dosage: 40 MG, AS NEEDED
     Route: 048

REACTIONS (2)
  - Malaise [Unknown]
  - Nasopharyngitis [Unknown]
